FAERS Safety Report 6503913-X (Version None)
Quarter: 2009Q4

REPORT INFORMATION
  Report Type: 
  Country: None (occurrence: None)
  Receive Date: 20091216
  Receipt Date: 20091216
  Transmission Date: 20100525
  Serious: No
  Sender: FDA-Public Use
  Company Number: None

PATIENT
  Sex: Female
  Weight: 70 kg

DRUGS (1)
  1. CLONIDINE [Suspect]
     Indication: HYPERTENSION
     Dates: start: 20090923, end: 20091214

REACTIONS (2)
  - BLOOD PRESSURE INADEQUATELY CONTROLLED [None]
  - PRODUCT ADHESION ISSUE [None]
